FAERS Safety Report 8063705-X (Version None)
Quarter: 2012Q1

REPORT INFORMATION
  Report Type: 
  Country: None (occurrence: None)
  Receive Date: 20120123
  Receipt Date: 20120120
  Transmission Date: 20120608
  Serious: Yes (Life-Threatening, Hospitalization)
  Sender: FDA-Public Use
  Company Number: JP-B.I. PHARMACEUTICALS,INC./RIDGEFIELD-2011-BP-23145NB

PATIENT
  Sex: Female

DRUGS (11)
  1. LASIX [Concomitant]
     Indication: CARDIAC FAILURE
     Dosage: 20 MG
     Route: 065
  2. SEROQUEL [Concomitant]
     Dosage: 100 MG
     Route: 065
  3. ASPENON [Concomitant]
     Indication: ATRIAL FIBRILLATION
     Dosage: 20 MG
     Route: 065
  4. ASPIRIN [Suspect]
     Dosage: 100 MG
     Route: 065
  5. LIVALO [Concomitant]
     Dosage: 1 MG
     Route: 065
  6. MICARDIS [Concomitant]
     Dosage: 20 MG
     Route: 065
  7. RISEDRONATE SODIUM [Concomitant]
     Dosage: 17.5 MG
     Route: 065
  8. PRADAXA [Suspect]
     Indication: ATRIAL FIBRILLATION
     Dosage: 220 MG
     Route: 048
     Dates: start: 20110601, end: 20110910
  9. PRAMIPEXOLE DIHYDROCHLORIDE [Concomitant]
     Dosage: 0.5 MG
     Route: 065
  10. METOPROLOL TARTRATE [Concomitant]
     Dosage: 60 MG
     Route: 065
  11. ARICEPT [Concomitant]
     Dosage: 1.5 MG
     Route: 065

REACTIONS (3)
  - CEREBRAL HAEMORRHAGE [None]
  - HEMIPLEGIA [None]
  - ALTERED STATE OF CONSCIOUSNESS [None]
